FAERS Safety Report 22198487 (Version 1)
Quarter: 2023Q2

REPORT INFORMATION
  Report Type: Spontaneous
  Country: CN (occurrence: None)
  Receive Date: 20230411
  Receipt Date: 20230411
  Transmission Date: 20230722
  Serious: Yes (Life-Threatening, Other)
  Sender: FDA-Public Use
  Company Number: 2023A081541

PATIENT
  Age: 22 Year
  Sex: Female
  Weight: 42.5 kg

DRUGS (3)
  1. QUETIAPINE FUMARATE [Suspect]
     Active Substance: QUETIAPINE FUMARATE
     Indication: Completed suicide
     Dosage: 80
     Route: 048
     Dates: start: 20230208, end: 20230208
  2. DULOXETINE [Suspect]
     Active Substance: DULOXETINE
     Indication: Completed suicide
     Dosage: 56
     Route: 048
     Dates: start: 20230208, end: 20230208
  3. LAMOTRIGINE [Suspect]
     Active Substance: LAMOTRIGINE
     Indication: Completed suicide
     Dosage: 60
     Route: 048
     Dates: start: 20230208, end: 20230208

REACTIONS (9)
  - Suicide attempt [Unknown]
  - Cardio-respiratory arrest [Recovering/Resolving]
  - Ventricular fibrillation [Unknown]
  - Pneumonia [Unknown]
  - Condition aggravated [Unknown]
  - Seizure [Unknown]
  - Productive cough [Unknown]
  - Cough [Unknown]
  - Pyrexia [Unknown]

NARRATIVE: CASE EVENT DATE: 20230208
